FAERS Safety Report 21935858 (Version 1)
Quarter: 2023Q1

REPORT INFORMATION
  Report Type: Spontaneous
  Country: IT (occurrence: IT)
  Receive Date: 20230201
  Receipt Date: 20230201
  Transmission Date: 20230418
  Serious: Yes (Other)
  Sender: FDA-Public Use
  Company Number: None

PATIENT
  Age: 45 Year
  Sex: Male

DRUGS (1)
  1. KETOPROFEN [Suspect]
     Active Substance: KETOPROFEN
     Indication: Torticollis
     Dosage: UNK (NOT KNOWN)
     Route: 048
     Dates: start: 20220708, end: 20220708

REACTIONS (2)
  - Dyspnoea [Recovered/Resolved]
  - Periorbital oedema [Recovered/Resolved]

NARRATIVE: CASE EVENT DATE: 20220709
